FAERS Safety Report 5494327-2 (Version None)
Quarter: 2007Q4

REPORT INFORMATION
  Report Type: 
  Country: None (occurrence: None)
  Receive Date: 20071022
  Receipt Date: 20071010
  Transmission Date: 20080405
  Serious: Yes (Hospitalization)
  Sender: FDA-Public Use
  Company Number: 2007-01812

PATIENT
  Age: 82 Year
  Sex: Male

DRUGS (3)
  1. VELCADE [Suspect]
     Indication: MULTIPLE MYELOMA
     Dates: start: 20061023, end: 20070405
  2. ZOMETA [Concomitant]
  3. BISPHOSPHONATES [Concomitant]

REACTIONS (6)
  - DEMYELINATION [None]
  - ELECTROENCEPHALOGRAM ABNORMAL [None]
  - OPTIC NEURITIS [None]
  - PAPILLITIS [None]
  - PAPILLOEDEMA [None]
  - PARKINSONISM [None]
